FAERS Safety Report 7222537-2 (Version None)
Quarter: 2011Q1

REPORT INFORMATION
  Report Type: 
  Country: None (occurrence: None)
  Receive Date: 20110112
  Receipt Date: 20110111
  Transmission Date: 20110831
  Serious: Yes (Other)
  Sender: FDA-Public Use
  Company Number: JP-PFIZER INC-2011007148

PATIENT
  Age: 30 Year
  Sex: Female

DRUGS (1)
  1. UNASYN [Suspect]
     Dosage: UNK
     Route: 041

REACTIONS (1)
  - RENAL IMPAIRMENT [None]
